FAERS Safety Report 4818788-4 (Version None)
Quarter: 2005Q4

REPORT INFORMATION
  Report Type: 
  Country: None (occurrence: None)
  Receive Date: 20051101
  Receipt Date: 20051021
  Transmission Date: 20060501
  Serious: Yes (Hospitalization)
  Sender: FDA-Public Use
  Company Number: 2005145672

PATIENT
  Age: 88 Year
  Sex: Female

DRUGS (1)
  1. CELEBREX [Suspect]
     Indication: ARTHRITIS
     Dosage: 200 MG (1 IN 1 D)

REACTIONS (3)
  - DEHYDRATION [None]
  - HAEMATEMESIS [None]
  - HELICOBACTER INFECTION [None]
